FAERS Safety Report 25775397 (Version 1)
Quarter: 2025Q3

REPORT INFORMATION
  Report Type: Report from Study
  Country: US (occurrence: US)
  Receive Date: 20250909
  Receipt Date: 20250909
  Transmission Date: 20251021
  Serious: Yes (Other)
  Sender: ALEXION PHARMACEUTICALS
  Company Number: US-AstraZeneca-CH-00944878A

PATIENT
  Sex: Female
  Weight: 94.4 kg

DRUGS (1)
  1. OLAPARIB [Suspect]
     Active Substance: OLAPARIB
     Indication: Peritoneal cancer index
     Dosage: 250 MILLIGRAM, BID

REACTIONS (3)
  - Neuropathy peripheral [Unknown]
  - Nausea [Unknown]
  - Fatigue [Unknown]
